FAERS Safety Report 4879704-2 (Version None)
Quarter: 2006Q1

REPORT INFORMATION
  Report Type: 
  Country: None (occurrence: None)
  Receive Date: 20060111
  Receipt Date: 20060101
  Transmission Date: 20060701
  Serious: Yes (Other)
  Sender: FDA-Public Use
  Company Number: 2006000807

PATIENT
  Age: 22 Month
  Sex: Female

DRUGS (2)
  1. BENADRYL CHILDREN'S ALLERGY AND SINUS (DIPHENHYDRAMINE, PSEUDOEPHEDRIN [Suspect]
     Indication: RESPIRATORY DISORDER
     Dosage: ORAL
     Route: 048
  2. ACETAMINOPHEN [Suspect]
     Indication: FATIGUE
     Dosage: ONCE, ORAL

REACTIONS (8)
  - FALL [None]
  - FATIGUE [None]
  - LACERATION [None]
  - LETHARGY [None]
  - LIMB INJURY [None]
  - LIVEDO RETICULARIS [None]
  - SKIN DISCOLOURATION [None]
  - YAWNING [None]
